FAERS Safety Report 5938650-3 (Version None)
Quarter: 2008Q4

REPORT INFORMATION
  Report Type: 
  Country: None (occurrence: None)
  Receive Date: 20081103
  Receipt Date: 20081027
  Transmission Date: 20090506
  Serious: Yes (Life-Threatening, Hospitalization)
  Sender: FDA-Public Use
  Company Number: DE-BRACCO-000183

PATIENT
  Age: 65 Year
  Sex: Female

DRUGS (2)
  1. SOLUTRAST [Suspect]
     Indication: SPINAL MYELOGRAM
     Dosage: ROUTE: LUMBAR
     Route: 037
     Dates: start: 20080829, end: 20080829
  2. SOLUTRAST [Suspect]
     Indication: SPINAL COLUMN STENOSIS
     Dosage: ROUTE: LUMBAR
     Route: 037
     Dates: start: 20080829, end: 20080829

REACTIONS (4)
  - BRAIN OEDEMA [None]
  - CONVULSION [None]
  - POST PROCEDURAL COMPLICATION [None]
  - RESPIRATORY ARREST [None]
